FAERS Safety Report 20702192 (Version 2)
Quarter: 2022Q2

REPORT INFORMATION
  Report Type: Spontaneous
  Country: AU (occurrence: AU)
  Receive Date: 20220412
  Receipt Date: 20220414
  Transmission Date: 20220721
  Serious: Yes (Death, Hospitalization)
  Sender: FDA-Public Use
  Company Number: AU-ELI_LILLY_AND_COMPANY-AU202204004929

PATIENT
  Age: 55 Year
  Sex: Male

DRUGS (4)
  1. PEMETREXED [Suspect]
     Active Substance: PEMETREXED
     Indication: Non-small cell lung cancer metastatic
     Dosage: 840 MG, UNKNOWN
     Route: 042
     Dates: start: 20201029, end: 20201119
  2. CARBOPLATIN [Suspect]
     Active Substance: CARBOPLATIN
     Indication: Non-small cell lung cancer metastatic
     Dosage: 600 MG, UNKNOWN
     Route: 042
     Dates: start: 20201029, end: 20201119
  3. PEMBROLIZUMAB [Suspect]
     Active Substance: PEMBROLIZUMAB
     Indication: Non-small cell lung cancer metastatic
     Dosage: 200 MG, OTHER (EVERY THREE WEEKS)
     Route: 042
     Dates: start: 20201029, end: 20201119
  4. DEXAMETHASONE [Concomitant]
     Active Substance: DEXAMETHASONE
     Indication: Product used for unknown indication
     Dosage: UNK, UNKNOWN

REACTIONS (3)
  - Malignant neoplasm progression [Fatal]
  - Immune-mediated hepatitis [Recovered/Resolved]
  - Immune-mediated lung disease [Recovered/Resolved]

NARRATIVE: CASE EVENT DATE: 20201101
